FAERS Safety Report 8465056-8 (Version None)
Quarter: 2012Q2

REPORT INFORMATION
  Report Type: 
  Country: None (occurrence: None)
  Receive Date: 20120626
  Receipt Date: 20120621
  Transmission Date: 20120825
  Serious: Yes (Death)
  Sender: FDA-Public Use
  Company Number: AU-PFIZER INC-2012149988

PATIENT
  Age: 52 Year
  Sex: Female

DRUGS (1)
  1. REVATIO [Suspect]

REACTIONS (1)
  - DISEASE PROGRESSION [None]
